FAERS Safety Report 9827819 (Version 1)
Quarter: 2013Q4

REPORT INFORMATION
  Report Type: Spontaneous
  Country: US (occurrence: None)
  Receive Date: 20131120
  Receipt Date: 20131120
  Transmission Date: 20140711
  Serious: Yes (Other)
  Sender: FDA-Public Use
  Company Number: DEP_01040_2013

PATIENT
  Sex: 0

DRUGS (1)
  1. GRALISE [Suspect]
     Indication: PRODUCT USED FOR UNKNOWN INDICATION
     Dosage: (DF) UNKNOWN  THERAPY DATES

REACTIONS (1)
  - Angioedema [None]
